FAERS Safety Report 6391427-X (Version None)
Quarter: 2009Q4

REPORT INFORMATION
  Report Type: 
  Country: None (occurrence: None)
  Receive Date: 20091007
  Receipt Date: 20091001
  Transmission Date: 20100525
  Serious: Yes (Life-Threatening, Other)
  Sender: FDA-Public Use
  Company Number: PHHY2009AU42936

PATIENT
  Sex: Female

DRUGS (2)
  1. VOLTAREN [Suspect]
     Indication: BACK PAIN
     Dosage: 2 TABLET
     Route: 048
  2. VOLTAREN [Suspect]
     Indication: PAIN IN EXTREMITY

REACTIONS (7)
  - DISCOMFORT [None]
  - DYSPHAGIA [None]
  - EYE PRURITUS [None]
  - LOSS OF CONTROL OF LEGS [None]
  - PRURITUS GENERALISED [None]
  - SWOLLEN TONGUE [None]
  - THROAT TIGHTNESS [None]
